FAERS Safety Report 17265384 (Version 2)
Quarter: 2020Q4

REPORT INFORMATION
  Report Type: Report from Study
  Country: US (occurrence: US)
  Receive Date: 20200114
  Receipt Date: 20201229
  Transmission Date: 20210113
  Serious: No
  Sender: FDA-Public Use
  Company Number: NVSC2020US006403

PATIENT
  Sex: Female

DRUGS (4)
  1. ILARIS [Suspect]
     Active Substance: CANAKINUMAB
     Dosage: 150 UNK
     Route: 065
  2. ILARIS [Suspect]
     Active Substance: CANAKINUMAB
     Indication: JUVENILE IDIOPATHIC ARTHRITIS
     Dosage: 60 MG, QMO
     Route: 058
     Dates: start: 201912
  3. ILARIS [Suspect]
     Active Substance: CANAKINUMAB
     Dosage: 70 MG, QMO
     Route: 058
     Dates: start: 20200213
  4. METHOTREXATE. [Concomitant]
     Active Substance: METHOTREXATE
     Indication: PRODUCT USED FOR UNKNOWN INDICATION
     Dosage: UNK
     Route: 065

REACTIONS (7)
  - Syringe issue [Unknown]
  - Fatigue [Unknown]
  - Osteoarthritis [Unknown]
  - Pyrexia [Unknown]
  - Underdose [Unknown]
  - Accidental exposure to product [Unknown]
  - Drug ineffective [Unknown]
